FAERS Safety Report 22243807 (Version 1)
Quarter: 2023Q2

REPORT INFORMATION
  Report Type: Spontaneous
  Country: CA (occurrence: CA)
  Receive Date: 20230424
  Receipt Date: 20230424
  Transmission Date: 20230722
  Serious: Yes (Other)
  Sender: FDA-Public Use
  Company Number: CA-JNJFOC-20230448905

PATIENT
  Age: 32 Year
  Sex: Male
  Weight: 134 kg

DRUGS (7)
  1. REMICADE [Suspect]
     Active Substance: INFLIXIMAB
     Indication: Colitis ulcerative
     Route: 041
  2. INFLIXIMAB [Suspect]
     Active Substance: INFLIXIMAB
     Indication: Colitis ulcerative
     Route: 042
  3. INFLIXIMAB [Suspect]
     Active Substance: INFLIXIMAB
     Route: 042
  4. INFLIXIMAB [Suspect]
     Active Substance: INFLIXIMAB
     Route: 042
  5. INFLIXIMAB [Suspect]
     Active Substance: INFLIXIMAB
     Route: 042
  6. AZATHIOPRINE [Concomitant]
     Active Substance: AZATHIOPRINE
  7. MESALAMINE [Concomitant]
     Active Substance: MESALAMINE

REACTIONS (6)
  - Faecal calprotectin increased [Recovered/Resolved]
  - Weight decreased [Recovered/Resolved]
  - Dizziness [Recovered/Resolved]
  - Condition aggravated [Recovered/Resolved]
  - Off label use [Recovered/Resolved]
  - Inappropriate schedule of product administration [Recovered/Resolved]
